FAERS Safety Report 25389283 (Version 1)
Quarter: 2025Q2

REPORT INFORMATION
  Report Type: Spontaneous
  Country: US (occurrence: US)
  Receive Date: 20250603
  Receipt Date: 20250603
  Transmission Date: 20250716
  Serious: No
  Sender: Kenvue
  Company Number: US-KENVUE-20250504677

PATIENT
  Sex: Male

DRUGS (10)
  1. IMODIUM [Suspect]
     Active Substance: LOPERAMIDE HYDROCHLORIDE
     Indication: Diarrhoea
     Route: 065
     Dates: start: 2025
  2. OFEV [Concomitant]
     Active Substance: NINTEDANIB
     Indication: Idiopathic pulmonary fibrosis
     Dosage: 150 MILLIGRAM, TWICE A DAY
     Route: 048
     Dates: start: 20250312
  3. OFEV [Concomitant]
     Active Substance: NINTEDANIB
     Dosage: 150 MILLIGRAM, ONCE A DAY
     Route: 048
  4. OFEV [Concomitant]
     Active Substance: NINTEDANIB
     Dosage: 150 MILLIGRAM, TWICE A DAY
     Route: 048
     Dates: start: 20250312
  5. OFEV [Concomitant]
     Active Substance: NINTEDANIB
     Dosage: 150 MILLIGRAM, TWICE A DAY
     Route: 048
     Dates: start: 20250312
  6. OFEV [Concomitant]
     Active Substance: NINTEDANIB
     Dosage: 150 MILLIGRAM, TWICE A DAY
     Route: 048
     Dates: start: 20250312
  7. OFEV [Concomitant]
     Active Substance: NINTEDANIB
     Dosage: 150 MILLIGRAM, TWICE A DAY
     Route: 048
     Dates: start: 20250312
  8. ELIQUIS [Concomitant]
     Active Substance: APIXABAN
     Indication: Product used for unknown indication
     Route: 065
  9. MUCINEX [Concomitant]
     Active Substance: GUAIFENESIN
     Indication: Productive cough
     Route: 065
  10. TESSALON [Concomitant]
     Active Substance: BENZONATATE
     Indication: Productive cough
     Route: 065

REACTIONS (1)
  - Abdominal pain upper [Unknown]

NARRATIVE: CASE EVENT DATE: 20250101
